FAERS Safety Report 4603901-4 (Version None)
Quarter: 2005Q1

REPORT INFORMATION
  Report Type: 
  Country: None (occurrence: None)
  Receive Date: 20050309
  Receipt Date: 20050221
  Transmission Date: 20050727
  Serious: Yes (Other)
  Sender: FDA-Public Use
  Company Number: 2005AP000174

PATIENT
  Age: 66 Year
  Sex: Male

DRUGS (11)
  1. DOXAZOSIN MESYLATE [Suspect]
     Indication: HYPERTENSION
     Dosage: 2 MG; EVERY DAY (DAILY)
  2. MULTI-VITAMINS [Concomitant]
  3. CALCITRIOL [Concomitant]
  4. CALCIUM CARBONATE [Concomitant]
  5. ASPIRIN [Concomitant]
  6. PREDNISONE [Concomitant]
  7. OMEPRAZOLE [Concomitant]
  8. IPRATROPIUM BROMIDE [Concomitant]
  9. EPOGEN [Concomitant]
  10. IRON DEXTRAN [Concomitant]
  11. ALBUTEROL [Concomitant]

REACTIONS (2)
  - LEUKOPENIA [None]
  - PLATELET COUNT DECREASED [None]
